FAERS Safety Report 7648944-1 (Version None)
Quarter: 2011Q3

REPORT INFORMATION
  Report Type: 
  Country: None (occurrence: None)
  Receive Date: 20110801
  Receipt Date: 20110727
  Transmission Date: 20111222
  Serious: Yes (Other)
  Sender: FDA-Public Use
  Company Number: US-BRISTOL-MYERS SQUIBB COMPANY-15878523

PATIENT
  Age: 69 Year
  Sex: Male

DRUGS (1)
  1. YERVOY [Suspect]
     Indication: METASTATIC MALIGNANT MELANOMA
     Route: 042
     Dates: start: 20110525

REACTIONS (5)
  - FATIGUE [None]
  - PAIN [None]
  - TRI-IODOTHYRONINE DECREASED [None]
  - BLOOD THYROID STIMULATING HORMONE DECREASED [None]
  - DECREASED APPETITE [None]
